FAERS Safety Report 6438536-4 (Version None)
Quarter: 2009Q4

REPORT INFORMATION
  Report Type: 
  Country: None (occurrence: None)
  Receive Date: 20091112
  Receipt Date: 20091006
  Transmission Date: 20100525
  Serious: Yes (Other)
  Sender: FDA-Public Use
  Company Number: US-GENENTECH-292017

PATIENT
  Sex: Female
  Weight: 145.13 kg

DRUGS (12)
  1. XOLAIR [Suspect]
     Indication: ASTHMA
     Dosage: 150 MG, Q2W
     Route: 058
     Dates: start: 20090129
  2. XOLAIR [Suspect]
     Dosage: 175 MG, UNK
  3. XOLAIR [Suspect]
     Dosage: 175 MG, UNK
     Dates: start: 20090611
  4. XOLAIR [Suspect]
     Dosage: 150 MG, UNK
     Dates: start: 20090811
  5. XOLAIR [Suspect]
     Dosage: 150 MG, UNK
     Dates: start: 20090825
  6. XOLAIR [Suspect]
     Dosage: 175 MG, UNK
     Dates: start: 20090910
  7. XOLAIR [Suspect]
     Dosage: 175 MG, UNK
     Dates: start: 20090922
  8. XOLAIR [Suspect]
     Dosage: 200 MG, UNK
     Dates: start: 20091008
  9. XOLAIR [Suspect]
     Dosage: 225 MG, UNK
     Route: 058
     Dates: start: 20091101
  10. INHALER (TYPE UNKNOWN) [Concomitant]
     Indication: DRUG USE FOR UNKNOWN INDICATION
  11. OXYGEN [Concomitant]
     Indication: PULMONARY HYPERTENSION
  12. OXYGEN [Concomitant]
     Indication: CHRONIC OBSTRUCTIVE PULMONARY DISEASE

REACTIONS (4)
  - ANAPHYLACTIC REACTION [None]
  - ANXIETY [None]
  - ASTHMA [None]
  - DIZZINESS [None]
